FAERS Safety Report 10059852 (Version 2)
Quarter: 2014Q2

REPORT INFORMATION
  Report Type: Spontaneous
  Country: CA (occurrence: CA)
  Receive Date: 20140404
  Receipt Date: 20140404
  Transmission Date: 20141212
  Serious: Yes (Hospitalization)
  Sender: FDA-Public Use
  Company Number: CA-GLAXOSMITHKLINE-A0894419A

PATIENT
  Age: 54 Year
  Sex: Female

DRUGS (4)
  1. TYKERB [Suspect]
     Indication: BREAST CANCER METASTATIC
     Dosage: 1250MG PER DAY
     Route: 048
     Dates: start: 20100314
  2. XELODA [Suspect]
     Indication: PRODUCT USED FOR UNKNOWN INDICATION
     Route: 065
  3. PREVACID [Concomitant]
  4. NAPROXEN [Concomitant]

REACTIONS (6)
  - Rash [Not Recovered/Not Resolved]
  - Rash [Unknown]
  - Lymphadenopathy [Unknown]
  - Pain [Unknown]
  - Inflammation [Unknown]
  - Malignant neoplasm progression [Unknown]
